FAERS Safety Report 17962720 (Version 1)
Quarter: 2020Q2

REPORT INFORMATION
  Report Type: Spontaneous
  Country: US (occurrence: US)
  Receive Date: 20200630
  Receipt Date: 20200630
  Transmission Date: 20200714
  Serious: Yes (Other)
  Sender: FDA-Public Use
  Company Number: US-PFIZER INC-2020248502

PATIENT
  Sex: Male

DRUGS (1)
  1. HEPARIN SODIUM. [Suspect]
     Active Substance: HEPARIN SODIUM
     Dosage: 5000 IU, 2X/DAY (12-HOURLY)
     Route: 058

REACTIONS (4)
  - Skin reaction [Unknown]
  - Confusional state [Unknown]
  - Pulmonary embolism [Unknown]
  - Hypotension [Recovered/Resolved]
